FAERS Safety Report 26011482 (Version 1)
Quarter: 2025Q4

REPORT INFORMATION
  Report Type: Spontaneous
  Country: US (occurrence: None)
  Receive Date: 20251106
  Receipt Date: 20251106
  Transmission Date: 20260118
  Serious: Yes (Hospitalization)
  Sender: FDA-CTU
  Company Number: None

PATIENT
  Sex: Male

DRUGS (2)
  1. DASATINIB [Suspect]
     Active Substance: DASATINIB
     Indication: White blood cell count increased
     Dosage: FREQUENCY : DAILY;?
     Route: 048
     Dates: start: 20250605
  2. SPRYCEL [Concomitant]
     Active Substance: DASATINIB

REACTIONS (2)
  - Pulmonary oedema [None]
  - Therapy change [None]
